FAERS Safety Report 17611715 (Version 1)
Quarter: 2020Q2

REPORT INFORMATION
  Report Type: Spontaneous
  Country: US (occurrence: US)
  Receive Date: 20200401
  Receipt Date: 20200401
  Transmission Date: 20200713
  Serious: No
  Sender: FDA-Public Use
  Company Number: US-INSUD PHARMA-2003US00051

PATIENT

DRUGS (1)
  1. BENZNIDAZOLE. [Suspect]
     Active Substance: BENZNIDAZOLE
     Indication: AMERICAN TRYPANOSOMIASIS
     Dosage: 1.5 TABLETS TWICE A DAY
     Route: 048
     Dates: start: 202001

REACTIONS (2)
  - Intentional product use issue [Unknown]
  - Rash [Unknown]

NARRATIVE: CASE EVENT DATE: 2020
